FAERS Safety Report 23049866 (Version 1)
Quarter: 2023Q4

REPORT INFORMATION
  Report Type: Spontaneous
  Country: US (occurrence: None)
  Receive Date: 20231008
  Receipt Date: 20231008
  Transmission Date: 20240110
  Serious: No
  Sender: FDA-Public Use
  Company Number: None

PATIENT
  Age: 55 Year
  Sex: Female
  Weight: 103.5 kg

DRUGS (6)
  1. CREON [Suspect]
     Active Substance: PANCRELIPASE AMYLASE\PANCRELIPASE LIPASE\PANCRELIPASE PROTEASE
     Indication: Product used for unknown indication
     Dosage: OTHER QUANTITY : 2 CAPSULE(S);?FREQUENCY : 4 TIMES A DAY;?
     Route: 048
     Dates: start: 20231008, end: 20231008
  2. ACETAZOLAMIDE [Concomitant]
     Active Substance: ACETAZOLAMIDE
  3. TIZANIDINE [Concomitant]
     Active Substance: TIZANIDINE
  4. FARXIGA [Concomitant]
     Active Substance: DAPAGLIFLOZIN PROPANEDIOL
  5. MELOXICAM [Concomitant]
     Active Substance: MELOXICAM
  6. Raberprozole [Concomitant]

REACTIONS (2)
  - Diarrhoea [None]
  - Vomiting [None]
